FAERS Safety Report 25066588 (Version 1)
Quarter: 2025Q1

REPORT INFORMATION
  Report Type: Spontaneous
  Country: IT (occurrence: IT)
  Receive Date: 20250312
  Receipt Date: 20250312
  Transmission Date: 20250409
  Serious: Yes (Life-Threatening, Hospitalization, Other)
  Sender: CHEPLAPHARM
  Company Number: None

PATIENT
  Age: 64 Year
  Sex: Female

DRUGS (7)
  1. CAPECITABINE [Interacting]
     Active Substance: CAPECITABINE
     Indication: Adenocarcinoma of colon
     Dates: start: 2012
  2. CAPECITABINE [Interacting]
     Active Substance: CAPECITABINE
     Indication: Adenocarcinoma of colon
     Dates: start: 202411, end: 202412
  3. CAPECITABINE [Interacting]
     Active Substance: CAPECITABINE
     Indication: Adenocarcinoma of colon
     Route: 048
     Dates: start: 20250103, end: 20250112
  4. CAPECITABINE [Interacting]
     Active Substance: CAPECITABINE
     Indication: Adenocarcinoma of colon
  5. BRIVUDINE [Interacting]
     Active Substance: BRIVUDINE
     Dosage: 1 CP PER DAY?DAILY DOSE: 1 DOSAGE FORM
     Route: 048
     Dates: start: 20241224, end: 20241231
  6. OXALIPLATIN [Suspect]
     Active Substance: OXALIPLATIN
     Indication: Adenocarcinoma of colon
     Dates: start: 2012
  7. OXALIPLATIN [Suspect]
     Active Substance: OXALIPLATIN
     Indication: Adenocarcinoma of colon
     Dates: start: 202405

REACTIONS (10)
  - Mucosal toxicity [Recovered/Resolved]
  - Haematotoxicity [Recovered/Resolved]
  - Post procedural sepsis [Unknown]
  - Colon dysplasia [Unknown]
  - Haematoma [Unknown]
  - Colorectal adenoma [Unknown]
  - Herpes simplex reactivation [Recovered/Resolved]
  - Drug interaction [Recovered/Resolved]
  - Oesophagitis [Unknown]
  - Gastric mucosa erythema [Unknown]

NARRATIVE: CASE EVENT DATE: 20240114
